FAERS Safety Report 7105119-2 (Version None)
Quarter: 2010Q4

REPORT INFORMATION
  Report Type: 
  Country: None (occurrence: None)
  Receive Date: 20101116
  Receipt Date: 20101105
  Transmission Date: 20110411
  Serious: Yes (Other)
  Sender: FDA-Public Use
  Company Number: US-JNJFOC-20101103083

PATIENT
  Age: 54 Year
  Sex: Female

DRUGS (1)
  1. DOXIL [Suspect]
     Indication: OVARIAN EPITHELIAL CANCER
     Dosage: CUMULATIVE DOSE 3000 MG/M2
     Route: 042

REACTIONS (1)
  - LIP AND/OR ORAL CAVITY CANCER [None]
